FAERS Safety Report 4526681-X (Version None)
Quarter: 2004Q4

REPORT INFORMATION
  Report Type: 
  Country: None (occurrence: None)
  Receive Date: 20041213
  Receipt Date: 20041202
  Transmission Date: 20050328
  Serious: Yes (Hospitalization, Other)
  Sender: FDA-Public Use
  Company Number: 04US000538

PATIENT
  Age: 10 Year
  Sex: Male

DRUGS (7)
  1. LITHIUM CARBONATE [Suspect]
     Indication: BIPOLAR DISORDER
     Dosage: 600 MG, BID
  2. METHYLPHENIDATE [Concomitant]
  3. ESCITALOPRAM [Concomitant]
  4. OXACARBAZINE [Concomitant]
  5. DEPAKOTE [Concomitant]
  6. LEVOTHYROXINE SODIUM [Concomitant]
  7. CLONIDINE [Concomitant]

REACTIONS (17)
  - ABDOMINAL PAIN [None]
  - ANTIPSYCHOTIC DRUG LEVEL BELOW THERAPEUTIC [None]
  - ATRIOVENTRICULAR BLOCK FIRST DEGREE [None]
  - CONDUCTION DISORDER [None]
  - DIARRHOEA [None]
  - DISORIENTATION [None]
  - DIZZINESS [None]
  - ELECTROCARDIOGRAM QRS COMPLEX PROLONGED [None]
  - HYPOTENSION [None]
  - MANIA [None]
  - MARKEDLY REDUCED DIETARY INTAKE [None]
  - PALLOR [None]
  - THERAPEUTIC AGENT TOXICITY [None]
  - VENTRICULAR EXTRASYSTOLES [None]
  - VENTRICULAR TACHYCARDIA [None]
  - VOMITING [None]
  - WHITE BLOOD CELL COUNT INCREASED [None]
